FAERS Safety Report 9842334 (Version 3)
Quarter: 2014Q1

REPORT INFORMATION
  Report Type: Spontaneous
  Country: IT (occurrence: IT)
  Receive Date: 20140124
  Receipt Date: 20140319
  Transmission Date: 20141002
  Serious: Yes (Other)
  Sender: FDA-Public Use
  Company Number: IT-PFIZER INC-2014020805

PATIENT
  Age: 59 Year
  Sex: Male
  Weight: 77 kg

DRUGS (5)
  1. IRINOTECAN HCL [Suspect]
     Indication: CHEMOTHERAPY
     Dosage: 320 MG, CYCLIC
     Route: 042
     Dates: start: 20121223
  2. ERBITUX [Suspect]
     Indication: COLON CANCER METASTATIC
     Dosage: 900 MG, CYCLIC
     Route: 042
     Dates: start: 20121223
  3. FLUOROURACIL [Suspect]
     Indication: CHEMOTHERAPY
     Dosage: 4320 MG, CYCLIC
     Route: 041
     Dates: start: 20121223, end: 20130401
  4. FLUOROURACIL [Suspect]
     Dosage: 710 MG, CYCLIC
     Route: 040
     Dates: start: 20121223, end: 20130401
  5. LEVOFOLINIC ACID [Concomitant]
     Indication: CHEMOTHERAPY
     Dosage: 360 MG, UNK
     Route: 042
     Dates: start: 20121223, end: 20130401

REACTIONS (1)
  - Atrial fibrillation [Unknown]
